FAERS Safety Report 20437256 (Version 2)
Quarter: 2022Q1

REPORT INFORMATION
  Report Type: Spontaneous
  Country: CN (occurrence: CN)
  Receive Date: 20220207
  Receipt Date: 20220302
  Transmission Date: 20220423
  Serious: Yes (Hospitalization, Other)
  Sender: FDA-Public Use
  Company Number: CN-SA-SAC20220204000046

PATIENT
  Age: 51 Year
  Sex: Male
  Weight: 67 kg

DRUGS (2)
  1. OXALIPLATIN [Suspect]
     Active Substance: OXALIPLATIN
     Indication: Malignant anorectal neoplasm
     Dosage: 120 MG, 1X
     Route: 041
     Dates: start: 20220124, end: 20220124
  2. DEXTROSE [Concomitant]
     Active Substance: DEXTROSE
     Indication: Malignant anorectal neoplasm
     Dosage: 250 ML, 1X
     Route: 041
     Dates: start: 20220124, end: 20220124

REACTIONS (3)
  - Heart rate increased [Recovering/Resolving]
  - Chills [Recovering/Resolving]
  - Pyrexia [Recovering/Resolving]

NARRATIVE: CASE EVENT DATE: 20220124
